FAERS Safety Report 25985889 (Version 1)
Quarter: 2025Q4

REPORT INFORMATION
  Report Type: Spontaneous
  Country: US (occurrence: US)
  Receive Date: 20251102
  Receipt Date: 20251102
  Transmission Date: 20260118
  Serious: Yes (Hospitalization, Other)
  Sender: DIFGEN PHARMACEUTICALS LLC
  Company Number: US-Difgen-012284

PATIENT
  Sex: Female
  Weight: 3.5 kg

DRUGS (20)
  1. COCAINE [Suspect]
     Active Substance: COCAINE
     Indication: Foetal exposure during pregnancy
     Route: 064
  2. COCAINE [Suspect]
     Active Substance: COCAINE
     Indication: Foetal exposure during pregnancy
     Route: 063
  3. COCAINE [Suspect]
     Active Substance: COCAINE
     Indication: Maternal exposure during breast feeding
     Route: 064
  4. COCAINE [Suspect]
     Active Substance: COCAINE
     Indication: Maternal exposure during breast feeding
     Route: 063
  5. METHAMPHETAMINE [Suspect]
     Active Substance: METHAMPHETAMINE
     Indication: Foetal exposure during pregnancy
     Route: 064
  6. METHAMPHETAMINE [Suspect]
     Active Substance: METHAMPHETAMINE
     Indication: Foetal exposure during pregnancy
     Route: 063
  7. METHAMPHETAMINE [Suspect]
     Active Substance: METHAMPHETAMINE
     Indication: Maternal exposure during breast feeding
     Route: 064
  8. METHAMPHETAMINE [Suspect]
     Active Substance: METHAMPHETAMINE
     Indication: Maternal exposure during breast feeding
     Route: 063
  9. QUINIDINE [Suspect]
     Active Substance: QUINIDINE
     Indication: Foetal exposure during pregnancy
     Route: 064
  10. QUINIDINE [Suspect]
     Active Substance: QUINIDINE
     Indication: Foetal exposure during pregnancy
     Route: 063
  11. QUINIDINE [Suspect]
     Active Substance: QUINIDINE
     Indication: Maternal exposure during breast feeding
     Route: 064
  12. QUINIDINE [Suspect]
     Active Substance: QUINIDINE
     Indication: Maternal exposure during breast feeding
     Route: 063
  13. XYLAZINE [Suspect]
     Active Substance: XYLAZINE
     Indication: Foetal exposure during pregnancy
     Route: 064
  14. XYLAZINE [Suspect]
     Active Substance: XYLAZINE
     Indication: Foetal exposure during pregnancy
     Route: 063
  15. XYLAZINE [Suspect]
     Active Substance: XYLAZINE
     Indication: Maternal exposure during breast feeding
     Route: 064
  16. XYLAZINE [Suspect]
     Active Substance: XYLAZINE
     Indication: Maternal exposure during breast feeding
     Route: 063
  17. FENTANYL [Suspect]
     Active Substance: FENTANYL
     Indication: Foetal exposure during pregnancy
     Route: 064
  18. FENTANYL [Suspect]
     Active Substance: FENTANYL
     Indication: Foetal exposure during pregnancy
     Route: 063
  19. FENTANYL [Suspect]
     Active Substance: FENTANYL
     Indication: Maternal exposure during breast feeding
     Route: 064
  20. FENTANYL [Suspect]
     Active Substance: FENTANYL
     Indication: Maternal exposure during breast feeding
     Route: 063

REACTIONS (16)
  - Bradycardia neonatal [Recovered/Resolved]
  - Hypertonia neonatal [Recovered/Resolved]
  - Irritability [Recovered/Resolved]
  - Rash macular [Recovered/Resolved]
  - Crying [Recovered/Resolved]
  - Restlessness [Recovered/Resolved]
  - Agitation neonatal [Recovered/Resolved]
  - Skin odour abnormal [Recovered/Resolved]
  - Breath odour [Recovered/Resolved]
  - Urine odour abnormal [Recovered/Resolved]
  - Abnormal faeces [Recovered/Resolved]
  - Umbilical erythema [Recovered/Resolved]
  - Poor feeding infant [Recovered/Resolved]
  - Drug withdrawal syndrome neonatal [Recovered/Resolved]
  - Maternal exposure during breast feeding [Unknown]
  - Foetal exposure during pregnancy [Unknown]
